FAERS Safety Report 8962830 (Version 5)
Quarter: 2013Q1

REPORT INFORMATION
  Report Type: Spontaneous
  Country: US (occurrence: US)
  Receive Date: 20121214
  Receipt Date: 20130207
  Transmission Date: 20140127
  Serious: Yes (Other)
  Sender: FDA-Public Use
  Company Number: US-PFIZER INC-2012310058

PATIENT
  Age: 69 Year
  Sex: Male

DRUGS (4)
  1. ZITHROMAX [Suspect]
     Indication: UPPER RESPIRATORY TRACT INFECTION
     Dosage: UNK
     Route: 048
  2. ZITHROMAX [Interacting]
     Indication: BRONCHITIS
  3. ZITHROMAX [Interacting]
     Indication: INFECTION
  4. PROGRAF [Interacting]
     Indication: PROPHYLAXIS AGAINST TRANSPLANT REJECTION
     Dosage: UNK

REACTIONS (3)
  - Drug interaction [Unknown]
  - Renal failure [Recovered/Resolved]
  - Drug level increased [Unknown]
